FAERS Safety Report 8792709 (Version 2)
Quarter: 2013Q3

REPORT INFORMATION
  Report Type: Spontaneous
  Country: US (occurrence: US)
  Receive Date: 20120918
  Receipt Date: 20130904
  Transmission Date: 20140515
  Serious: Yes (Hospitalization)
  Sender: FDA-Public Use
  Company Number: US-GLAXOSMITHKLINE-A0993112A

PATIENT
  Age: 66 Year
  Sex: Female

DRUGS (4)
  1. ADVAIR [Suspect]
     Indication: CHRONIC OBSTRUCTIVE PULMONARY DISEASE
     Dosage: 1PUFF TWICE PER DAY
     Route: 055
     Dates: start: 2006
  2. SPIRIVA [Concomitant]
  3. VENTOLIN HFA [Concomitant]
  4. CHEMOTHERAPY [Concomitant]

REACTIONS (3)
  - Pneumothorax [Recovered/Resolved]
  - Breast cancer stage II [Unknown]
  - Chemotherapy [Recovered/Resolved]
